FAERS Safety Report 7537572-4 (Version None)
Quarter: 2011Q2

REPORT INFORMATION
  Report Type: 
  Country: None (occurrence: None)
  Receive Date: 20110603
  Receipt Date: 20110518
  Transmission Date: 20111010
  Serious: Yes (Life-Threatening, Hospitalization, Other)
  Sender: FDA-Public Use
  Company Number: 2011MA006136

PATIENT
  Age: 18 Year
  Sex: Female
  Weight: 50 kg

DRUGS (1)
  1. DILTIAZEM HCL [Suspect]
     Indication: SUICIDE ATTEMPT
     Dosage: 3600 MG, 1X; PO
     Route: 048

REACTIONS (13)
  - HYPOTENSION [None]
  - OLIGURIA [None]
  - PERIPHERAL COLDNESS [None]
  - RESPIRATORY FAILURE [None]
  - BLOOD LACTIC ACID INCREASED [None]
  - INTENTIONAL OVERDOSE [None]
  - STAPHYLOCOCCAL SEPSIS [None]
  - HYPERGLYCAEMIA [None]
  - HEART RATE INCREASED [None]
  - BLOOD GLUCOSE INCREASED [None]
  - MECHANICAL VENTILATION [None]
  - TACHYCARDIA [None]
  - BLOOD CREATININE INCREASED [None]
